FAERS Safety Report 9743220 (Version 1)
Quarter: 2013Q4

REPORT INFORMATION
  Report Type: Spontaneous
  Country: US (occurrence: US)
  Receive Date: 20131210
  Receipt Date: 20131210
  Transmission Date: 20140711
  Serious: No
  Sender: FDA-Public Use
  Company Number: US-GILEAD-2009-0025076

PATIENT
  Sex: Female
  Weight: 75.3 kg

DRUGS (11)
  1. LETAIRIS [Suspect]
     Indication: PULMONARY ARTERIAL HYPERTENSION
     Route: 048
     Dates: start: 20091001
  2. SYNTHROID [Concomitant]
  3. COUMADIN [Concomitant]
  4. ZYRTEC [Concomitant]
  5. TIZANIDINE HCL [Concomitant]
  6. DIGOXIN [Concomitant]
  7. GABAPENTIN [Concomitant]
  8. PRILOSEC [Concomitant]
  9. BENICAR [Concomitant]
  10. ACTOPLUS MET [Concomitant]
  11. VITAMIN B COMPLEX [Concomitant]

REACTIONS (2)
  - Abdominal discomfort [Unknown]
  - Headache [Unknown]
